FAERS Safety Report 19656558 (Version 1)
Quarter: 2021Q3

REPORT INFORMATION
  Report Type: Report from Study
  Country: CA (occurrence: CA)
  Receive Date: 20210804
  Receipt Date: 20210804
  Transmission Date: 20211014
  Serious: Yes (Other)
  Sender: FDA-Public Use
  Company Number: CA-SA-2021SA254134

PATIENT
  Sex: Male

DRUGS (8)
  1. RANITIDINE. [Concomitant]
     Active Substance: RANITIDINE
  2. MIRABEGRON [Concomitant]
     Active Substance: MIRABEGRON
  3. OMEGA 3 [FISH OIL] [Concomitant]
     Active Substance: FISH OIL
  4. TAMSULOSIN [Suspect]
     Active Substance: TAMSULOSIN
  5. TERIFLUNOMIDE. [Suspect]
     Active Substance: TERIFLUNOMIDE
     Indication: RELAPSING-REMITTING MULTIPLE SCLEROSIS
     Dosage: 14 MG, QD
     Route: 048
     Dates: start: 20170901
  6. XANAX [Concomitant]
     Active Substance: ALPRAZOLAM
  7. VITAMIN D [VITAMIN D NOS] [Concomitant]
     Active Substance: VITAMIN D NOS
  8. GLUCOSAMINE [Concomitant]
     Active Substance: GLUCOSAMINE

REACTIONS (2)
  - Hypertension [Unknown]
  - Erectile dysfunction [Unknown]
